FAERS Safety Report 7849857-2 (Version None)
Quarter: 2011Q4

REPORT INFORMATION
  Report Type: 
  Country: None (occurrence: None)
  Receive Date: 20111025
  Receipt Date: 20111025
  Transmission Date: 20120403
  Serious: Yes (Hospitalization)
  Sender: FDA-Public Use
  Company Number: None

PATIENT
  Sex: Female
  Weight: 74.3 kg

DRUGS (2)
  1. PEMETREXED [Suspect]
     Dosage: 925 MG
  2. CISPLATIN [Suspect]
     Dosage: 90 MG

REACTIONS (2)
  - TOXICITY TO VARIOUS AGENTS [None]
  - BLOOD POTASSIUM DECREASED [None]
